FAERS Safety Report 12769934 (Version 1)
Quarter: 2016Q3

REPORT INFORMATION
  Report Type: Spontaneous
  Country: FR (occurrence: FR)
  Receive Date: 20160922
  Receipt Date: 20160922
  Transmission Date: 20161109
  Serious: Yes (Hospitalization, Other)
  Sender: FDA-Public Use
  Company Number: FR-ACCORD-044148

PATIENT
  Age: 83 Year
  Sex: Female

DRUGS (2)
  1. AVASTIN [Suspect]
     Active Substance: BEVACIZUMAB
     Indication: INVASIVE DUCTAL BREAST CARCINOMA
     Dosage: 25 MG/ML?ONE DOSAGE FORM EACH TWO WEEKS
     Dates: start: 20151126, end: 20160303
  2. PACLITAXEL ACCORD [Suspect]
     Active Substance: PACLITAXEL
     Indication: INVASIVE DUCTAL BREAST CARCINOMA
     Dosage: 4 ADMINISTRATIONS AT TOTAL
     Route: 042
     Dates: start: 20150819, end: 20160324

REACTIONS (3)
  - Urinary tract infection [Recovered/Resolved]
  - Acute kidney injury [Not Recovered/Not Resolved]
  - Neuropathy peripheral [Unknown]

NARRATIVE: CASE EVENT DATE: 20160303
